FAERS Safety Report 10424471 (Version 1)
Quarter: 2014Q3

REPORT INFORMATION
  Report Type: Spontaneous
  Country: JP (occurrence: JP)
  Receive Date: 20140902
  Receipt Date: 20140902
  Transmission Date: 20150326
  Serious: Yes (Hospitalization)
  Sender: FDA-Public Use
  Company Number: JP-PFIZER INC-2014241555

PATIENT
  Age: 73 Year
  Sex: Male
  Weight: 53 kg

DRUGS (8)
  1. MUCODYNE [Concomitant]
     Active Substance: CARBOCYSTEINE
     Dosage: 2250 MG, DAILY
     Route: 048
     Dates: start: 20140702, end: 20140721
  2. CEFTRIAXONE SODIUM. [Suspect]
     Active Substance: CEFTRIAXONE SODIUM
     Indication: PNEUMONIA
     Dosage: 4 G, DAILY
     Route: 041
     Dates: start: 20140720, end: 20140722
  3. TRAZENTA [Concomitant]
     Active Substance: LINAGLIPTIN
     Dosage: 5 MG, DAILY
     Route: 048
     Dates: start: 20140715, end: 20140721
  4. MICARDIS [Concomitant]
     Active Substance: TELMISARTAN
     Dosage: 20 MG, DAILY
     Route: 048
     Dates: start: 20140717, end: 20140721
  5. GENINAX [Suspect]
     Active Substance: GARENOXACIN MESYLATE
     Indication: PNEUMONIA
     Dosage: 400 MG, DAILY
     Route: 048
     Dates: start: 20140715, end: 20140720
  6. AMLODIPINE [Concomitant]
     Active Substance: AMLODIPINE BESYLATE
     Dosage: 5 MG, DAILY
     Route: 048
     Dates: start: 20140704
  7. ZOSYN [Suspect]
     Active Substance: PIPERACILLIN SODIUM\TAZOBACTAM SODIUM
     Indication: PNEUMONIA
     Dosage: 2.25 G X 3/DAY
     Route: 041
     Dates: start: 20140630, end: 20140714
  8. LANTUS [Concomitant]
     Active Substance: INSULIN GLARGINE
     Dosage: UNK
     Route: 058
     Dates: start: 20140704

REACTIONS (2)
  - Tubulointerstitial nephritis [Recovered/Resolved with Sequelae]
  - Renal tubular necrosis [Recovered/Resolved with Sequelae]

NARRATIVE: CASE EVENT DATE: 20140717
